FAERS Safety Report 6731930-3 (Version None)
Quarter: 2010Q2

REPORT INFORMATION
  Report Type: 
  Country: None (occurrence: None)
  Receive Date: 20100519
  Receipt Date: 20100512
  Transmission Date: 20101027
  Serious: Yes (Other)
  Sender: FDA-Public Use
  Company Number: US-JNJFOC-20100505602

PATIENT
  Age: 12 Year
  Sex: Female

DRUGS (1)
  1. RISPERDAL [Suspect]
     Indication: DRUG USE FOR UNKNOWN INDICATION
     Route: 065

REACTIONS (5)
  - FUNGAL INFECTION [None]
  - GASTROINTESTINAL DISORDER [None]
  - LUNG DISORDER [None]
  - PAIN OF SKIN [None]
  - SKIN DISCOLOURATION [None]
